FAERS Safety Report 5175036-6 (Version None)
Quarter: 2006Q4

REPORT INFORMATION
  Report Type: 
  Country: None (occurrence: None)
  Receive Date: 20061206
  Receipt Date: 20061127
  Transmission Date: 20070319
  Serious: Yes (Hospitalization, Other)
  Sender: FDA-Public Use
  Company Number: 2005146797

PATIENT
  Age: 44 Year
  Sex: Female

DRUGS (3)
  1. ATORVASTATIN CALCIUM [Suspect]
     Indication: ILL-DEFINED DISORDER
     Dosage: 20 MG (1 IN 1 D), ORAL
     Route: 048
     Dates: start: 20041201, end: 20051001
  2. NOVONORM (REPAGLINIDE) [Concomitant]
  3. CAPTOPRIL [Concomitant]

REACTIONS (11)
  - FORMICATION [None]
  - HEPATIC ENZYME INCREASED [None]
  - HYPERSENSITIVITY [None]
  - INTERVERTEBRAL DISC PROTRUSION [None]
  - LIPOMA [None]
  - MONONEUROPATHY MULTIPLEX [None]
  - MUSCLE DISORDER [None]
  - MUSCULAR WEAKNESS [None]
  - NEOPLASM RECURRENCE [None]
  - PARAESTHESIA [None]
  - TACHYCARDIA [None]
